FAERS Safety Report 9886632 (Version 2)
Quarter: 2014Q1

REPORT INFORMATION
  Report Type: Spontaneous
  Country: US (occurrence: US)
  Receive Date: 20140210
  Receipt Date: 20140314
  Transmission Date: 20141002
  Serious: Yes (Hospitalization)
  Sender: FDA-Public Use
  Company Number: US-GILEAD-2014-0093767

PATIENT
  Age: 42 Year
  Sex: Female
  Weight: 160.45 kg

DRUGS (15)
  1. SOVALDI [Suspect]
     Indication: CHRONIC HEPATITIS C
     Dosage: 400 MG, BID
     Route: 048
     Dates: start: 20140124
  2. SOVALDI [Suspect]
     Dosage: 400 MG, QD
     Route: 048
     Dates: start: 20140201
  3. RIBAVIRIN [Concomitant]
     Indication: CHRONIC HEPATITIS C
     Dosage: 600 MG, BID
     Route: 048
     Dates: start: 20140124
  4. PEGASYS [Concomitant]
     Indication: CHRONIC HEPATITIS C
     Dosage: 180 ?G, Q1WK
     Route: 058
     Dates: start: 20140124
  5. ESTRADIOL [Concomitant]
     Dosage: 1 MG, QD
  6. FLUOXETINE HCL [Concomitant]
     Dosage: 20 MG, QD AT BEDTIME
  7. HYDROCODONE W/PARACETAMOL [Concomitant]
     Dosage: 1, 5/325 MG TABLET (DF), PRN
  8. LAMOTRIGINE [Concomitant]
     Dosage: 150 MG, BID
  9. MAXALT [Concomitant]
     Dosage: 10 MG, PRN
  10. NADOLOL [Concomitant]
     Dosage: 40 MG, QD
  11. NITROSTAT [Concomitant]
     Dosage: 0.4 MG, PRN
     Route: 060
  12. PRAZOSIN HCL [Concomitant]
     Dosage: 2 MG, QD EVERY BEDTIME
  13. SUCRALFATE [Concomitant]
     Dosage: 1 G, QID
  14. TIZANIDINE [Concomitant]
  15. IBUPROFEN [Concomitant]
     Indication: BACK PAIN
     Dosage: 4-6 TABLETS (DF), DAILY PRN

REACTIONS (3)
  - Feeling abnormal [Recovered/Resolved]
  - Chronic fatigue syndrome [Recovered/Resolved]
  - Overdose [Recovered/Resolved]
